FAERS Safety Report 12610538 (Version 1)
Quarter: 2016Q3

REPORT INFORMATION
  Report Type: Spontaneous
  Country: FR (occurrence: FR)
  Receive Date: 20160801
  Receipt Date: 20160801
  Transmission Date: 20161109
  Serious: Yes (Death, Hospitalization, Other)
  Sender: FDA-Public Use
  Company Number: FR-PFIZER INC-2016349425

PATIENT
  Age: 70 Year
  Sex: Female

DRUGS (1)
  1. SUTENT [Suspect]
     Active Substance: SUNITINIB MALATE
     Indication: RENAL CANCER METASTATIC
     Dosage: 50 MG, DAILY
     Route: 048
     Dates: start: 20160606, end: 20160625

REACTIONS (12)
  - Metabolic acidosis [Not Recovered/Not Resolved]
  - Pigmentation disorder [Unknown]
  - Nail pigmentation [Unknown]
  - Ventricular dysfunction [Recovering/Resolving]
  - General physical health deterioration [Unknown]
  - Acute kidney injury [Not Recovered/Not Resolved]
  - Erythema [Unknown]
  - Asthenia [Unknown]
  - Dyspnoea [Unknown]
  - Gastrointestinal disorder [Unknown]
  - Cardiogenic shock [Fatal]
  - Thrombocytopenia [Unknown]

NARRATIVE: CASE EVENT DATE: 201606
